FAERS Safety Report 6028366-X (Version None)
Quarter: 2009Q1

REPORT INFORMATION
  Report Type: 
  Country: None (occurrence: None)
  Receive Date: 20090106
  Receipt Date: 20081230
  Transmission Date: 20090719
  Serious: Yes (Hospitalization)
  Sender: FDA-Public Use
  Company Number: PHBS2008FR01658

PATIENT
  Sex: Male

DRUGS (7)
  1. PARLODEL [Suspect]
     Indication: PARKINSON'S DISEASE
     Dosage: 10 MG, QD
     Route: 048
     Dates: start: 20030101, end: 20070720
  2. PARLODEL [Suspect]
     Dosage: 10 MG, BID
     Route: 048
     Dates: start: 20070701
  3. L-DOPA [Suspect]
     Indication: PARKINSON'S DISEASE
     Dosage: 1 DF, TID
     Route: 048
     Dates: start: 20040101, end: 20070723
  4. L-DOPA [Suspect]
     Dosage: 1 DF, BID
     Route: 048
     Dates: start: 20070723, end: 20070723
  5. L-DOPA [Suspect]
     Dosage: 1 DF, TID
     Route: 048
     Dates: start: 20070724
  6. MOTILIUM [Concomitant]
     Indication: PARKINSON'S DISEASE
     Dosage: 2 DF, TID
  7. MODOPAR [Concomitant]
     Dosage: 1 CAP TID
     Route: 048

REACTIONS (2)
  - CONCOMITANT DISEASE AGGRAVATED [None]
  - PATHOLOGICAL GAMBLING [None]
